FAERS Safety Report 22633132 (Version 2)
Quarter: 2025Q3

REPORT INFORMATION
  Report Type: Spontaneous
  Country: EU (occurrence: EU)
  Receive Date: 20230623
  Receipt Date: 20250701
  Transmission Date: 20251021
  Serious: Yes (Hospitalization, Other)
  Sender: AUROBINDO
  Company Number: EU-AEMPS-1379927

PATIENT
  Age: 34 Year
  Sex: Male

DRUGS (10)
  1. AMOXICILLIN [Interacting]
     Active Substance: AMOXICILLIN
     Indication: Product used for unknown indication
     Route: 048
     Dates: start: 20230603, end: 20230603
  2. AMOXICILLIN [Interacting]
     Active Substance: AMOXICILLIN
     Indication: Suicide attempt
  3. ACETAMINOPHEN [Interacting]
     Active Substance: ACETAMINOPHEN
     Indication: Product used for unknown indication
     Route: 048
     Dates: start: 20230603, end: 20230603
  4. ACETAMINOPHEN [Interacting]
     Active Substance: ACETAMINOPHEN
     Indication: Suicide attempt
  5. OMEPRAZOLE [Interacting]
     Active Substance: OMEPRAZOLE
     Indication: Product used for unknown indication
     Route: 048
     Dates: start: 20230603, end: 20230603
  6. OMEPRAZOLE [Interacting]
     Active Substance: OMEPRAZOLE
     Indication: Suicide attempt
  7. ALMAGATE [Interacting]
     Active Substance: ALMAGATE
     Indication: Product used for unknown indication
     Route: 048
     Dates: start: 20230603, end: 20230603
  8. ALMAGATE [Interacting]
     Active Substance: ALMAGATE
     Indication: Suicide attempt
  9. JANUMET [Interacting]
     Active Substance: METFORMIN HYDROCHLORIDE\SITAGLIPTIN PHOSPHATE
     Indication: Product used for unknown indication
     Route: 048
     Dates: start: 20230603, end: 20230603
  10. JANUMET [Interacting]
     Active Substance: METFORMIN HYDROCHLORIDE\SITAGLIPTIN PHOSPHATE
     Indication: Suicide attempt

REACTIONS (3)
  - Acute kidney injury [Recovered/Resolved]
  - Hyperlactacidaemia [Recovered/Resolved]
  - Intentional overdose [Recovered/Resolved]

NARRATIVE: CASE EVENT DATE: 20230603
